FAERS Safety Report 9794673 (Version 1)
Quarter: 2014Q1

REPORT INFORMATION
  Report Type: Spontaneous
  Country: FR (occurrence: FR)
  Receive Date: 20140102
  Receipt Date: 20140102
  Transmission Date: 20141002
  Serious: Yes (Other)
  Sender: FDA-Public Use
  Company Number: FR-ACTAVIS-2013-24241

PATIENT
  Age: 55 Year
  Sex: Female

DRUGS (33)
  1. ZOPICLONE [Suspect]
     Indication: PRODUCT USED FOR UNKNOWN INDICATION
     Dosage: 0.5 DF, DAILY
     Route: 048
     Dates: start: 20130723, end: 20130725
  2. VALACYCLOVIR [Suspect]
     Indication: PRODUCT USED FOR UNKNOWN INDICATION
     Dosage: 500 MG, DAILY
     Route: 048
     Dates: start: 20130621, end: 20130624
  3. VENLAFAXINE [Suspect]
     Indication: PRODUCT USED FOR UNKNOWN INDICATION
     Dosage: 37.5 MG, DAILY
     Route: 048
     Dates: start: 20130622, end: 20130725
  4. KIDROLASE [Suspect]
     Indication: PRODUCT USED FOR UNKNOWN INDICATION
     Dosage: 10600 IU, 1 IN 1 CYCLE
     Route: 042
     Dates: start: 20130705, end: 20130723
  5. METHYLPREDNISOLONE [Suspect]
     Indication: PRODUCT USED FOR UNKNOWN INDICATION
     Dosage: 30 MG, BID
     Route: 042
     Dates: start: 20130621, end: 20130628
  6. UROMITEXAN [Suspect]
     Indication: PRODUCT USED FOR UNKNOWN INDICATION
     Dosage: 400 MG, 1 IN 1 CYCLE
     Route: 042
     Dates: start: 20130628, end: 20130712
  7. VINCRISTIN TEVA [Suspect]
     Indication: PRODUCT USED FOR UNKNOWN INDICATION
     Dosage: 2 MG, 1 IN 1 CYCLE
     Route: 042
     Dates: start: 20130628, end: 20130719
  8. ENDOXAN /00021101/ [Suspect]
     Indication: PRODUCT USED FOR UNKNOWN INDICATION
     Dosage: 1300 MG, 1 IN 1 CYCLE
     Route: 042
     Dates: start: 20130628, end: 20130712
  9. ACLOTINE [Suspect]
     Indication: PRODUCT USED FOR UNKNOWN INDICATION
     Dosage: 3000 IU, 1 IN 1 CYCLE
     Route: 042
     Dates: start: 20130605, end: 20130723
  10. ACLOTINE [Suspect]
     Dosage: 3000 IU, 1 IN 1 CYCLE
     Route: 042
     Dates: start: 20130605, end: 20130723
  11. CERUBIDINE [Suspect]
     Indication: PRODUCT USED FOR UNKNOWN INDICATION
     Dosage: 50 MG, 1 IN 1 CYCLE
     Route: 042
     Dates: start: 20130628, end: 20130713
  12. LEXOMIL [Suspect]
     Indication: PRODUCT USED FOR UNKNOWN INDICATION
     Dosage: 0.5 DF, UNK
     Route: 048
     Dates: start: 20130708, end: 20130719
  13. LEXOMIL [Suspect]
     Dosage: 1 DF, DAILY
     Route: 048
     Dates: start: 20130621, end: 20130707
  14. GENTAMICINE PANPHARMA [Suspect]
     Indication: PRODUCT USED FOR UNKNOWN INDICATION
     Dosage: 300 MG, DAILY
     Route: 042
     Dates: start: 20130713, end: 20130714
  15. GENTAMICINE PANPHARMA [Suspect]
     Dosage: 180 MG, DAILY
     Route: 042
     Dates: start: 20130712, end: 20130712
  16. VANCOMYCINE MYLAN [Suspect]
     Indication: PRODUCT USED FOR UNKNOWN INDICATION
     Dosage: 2 G, DAILY
     Route: 042
     Dates: start: 20130718, end: 20130722
  17. PIPERACILLINE/TAZOBACTAM [Suspect]
     Indication: PRODUCT USED FOR UNKNOWN INDICATION
     Dosage: 4 G, TID
     Route: 042
     Dates: start: 20130712, end: 20130722
  18. TRANXENE [Suspect]
     Indication: PRODUCT USED FOR UNKNOWN INDICATION
     Dosage: 20 MG, DAILY
     Route: 042
     Dates: start: 201307, end: 201307
  19. FASTURTEC [Suspect]
     Indication: PRODUCT USED FOR UNKNOWN INDICATION
     Dosage: 15 MG, DAILY
     Route: 042
     Dates: start: 20130621, end: 20130627
  20. ZYLORIC [Suspect]
     Indication: PRODUCT USED FOR UNKNOWN INDICATION
     Dosage: 300 MG, DAILY
     Route: 048
     Dates: start: 20130627, end: 20130701
  21. ZOPHREN /00955301/ [Suspect]
     Indication: PRODUCT USED FOR UNKNOWN INDICATION
     Dosage: 3 DF, 1 IN 1 CYCLE
     Route: 042
     Dates: start: 20130628, end: 20130714
  22. DUPHALAC /00163401/ [Suspect]
     Indication: PRODUCT USED FOR UNKNOWN INDICATION
     Dosage: 1 DF, DAILY
     Route: 048
     Dates: start: 20130629, end: 20130629
  23. MOVICOL /01625101/ [Suspect]
     Indication: PRODUCT USED FOR UNKNOWN INDICATION
     Dosage: 1 DF, DAILY
     Route: 048
     Dates: start: 201307, end: 201307
  24. FUROSEMIDE RENAUDIN [Suspect]
     Indication: PRODUCT USED FOR UNKNOWN INDICATION
     Dosage: 20 MG X 3 DOSES ONLY ON 01, 05, AND 19 JUL 2013
     Route: 042
     Dates: start: 20130701, end: 20130719
  25. PARACETAMOL [Suspect]
     Indication: PRODUCT USED FOR UNKNOWN INDICATION
     Dosage: 1 G, ONLY ON 12 JUL AND 17 JUL
     Route: 042
     Dates: start: 20130712, end: 20130717
  26. GAVISCON /00480201/ [Suspect]
     Indication: PRODUCT USED FOR UNKNOWN INDICATION
     Dosage: 1 DF, DAILY
     Route: 048
     Dates: start: 20130712, end: 20130712
  27. GRANOCYTE /03200101/ [Suspect]
     Indication: PRODUCT USED FOR UNKNOWN INDICATION
     Dosage: 1 DF, DAILY
     Route: 058
     Dates: start: 20130717, end: 20130723
  28. HEPARINE SODIQUE [Suspect]
     Indication: PRODUCT USED FOR UNKNOWN INDICATION
     Dosage: 3000 IU, BID
     Route: 058
     Dates: start: 20130621, end: 20130725
  29. INEXIUM /01479302/ [Suspect]
     Indication: PRODUCT USED FOR UNKNOWN INDICATION
     Dosage: 15 MG, DAILY
     Route: 048
     Dates: start: 20130621, end: 20130624
  30. ACUPAN [Suspect]
     Indication: PRODUCT USED FOR UNKNOWN INDICATION
     Dosage: 1 DF, DAILY
     Route: 042
     Dates: start: 20130621, end: 20130725
  31. LEDERFOLINE [Suspect]
     Indication: PRODUCT USED FOR UNKNOWN INDICATION
     Dosage: 25 MG, DAILY
     Route: 048
     Dates: start: 20130621, end: 20130725
  32. PRIMPERAN [Suspect]
     Indication: PRODUCT USED FOR UNKNOWN INDICATION
     Dosage: 3 DF, DAILY
     Route: 042
     Dates: start: 20130711, end: 20130725
  33. BACTRIM [Suspect]
     Indication: PRODUCT USED FOR UNKNOWN INDICATION
     Dosage: 1 DF, TID
     Route: 048
     Dates: start: 20130626

REACTIONS (1)
  - Hypertriglyceridaemia [Recovering/Resolving]
